FAERS Safety Report 4828192-0 (Version None)
Quarter: 2005Q4

REPORT INFORMATION
  Report Type: 
  Country: None (occurrence: None)
  Receive Date: 20051115
  Receipt Date: 20050908
  Transmission Date: 20060501
  Serious: Yes (Hospitalization)
  Sender: FDA-Public Use
  Company Number: GB-GLAXOSMITHKLINE-B0393288A

PATIENT
  Age: 15 Year
  Sex: Male
  Weight: 53.5 kg

DRUGS (7)
  1. ONDANSETRON [Suspect]
     Indication: VOMITING
     Dosage: 4MG UNKNOWN
     Route: 042
     Dates: start: 20050804, end: 20050811
  2. ACETAMINOPHEN [Concomitant]
     Indication: ANALGESIC EFFECT
     Dosage: 1G PER DAY
     Route: 048
     Dates: start: 20050804, end: 20050820
  3. LACTULOSE [Concomitant]
     Indication: CONSTIPATION
     Dosage: 10ML PER DAY
     Route: 048
     Dates: start: 20050807, end: 20050815
  4. TRAMADOL HCL [Concomitant]
     Indication: ANALGESIC EFFECT
     Dosage: 50MG PER DAY
     Route: 048
     Dates: start: 20050806, end: 20050810
  5. MICONAZOLE [Concomitant]
     Route: 061
     Dates: start: 20050810
  6. CODEINE PHOSPHATE [Concomitant]
     Indication: ANALGESIC EFFECT
     Route: 048
     Dates: start: 20050811, end: 20050816
  7. MORPHINE [Concomitant]
     Indication: ANALGESIC EFFECT
     Dosage: .2ML PER DAY
     Route: 048
     Dates: start: 20050804, end: 20050810

REACTIONS (3)
  - CONVULSION [None]
  - MYOCLONUS [None]
  - OCULOGYRATION [None]
